FAERS Safety Report 17689421 (Version 1)
Quarter: 2020Q2

REPORT INFORMATION
  Report Type: Spontaneous
  Country: US (occurrence: US)
  Receive Date: 20200421
  Receipt Date: 20200421
  Transmission Date: 20200714
  Serious: No
  Sender: FDA-Public Use
  Company Number: US-INSMED, INC.-US-INS-20-00482

PATIENT
  Sex: Female

DRUGS (3)
  1. LAMIRA NEBULIZER SYSTEM [Suspect]
     Active Substance: DEVICE
  2. NUZYRA [Concomitant]
     Active Substance: OMADACYCLINE
     Indication: PRODUCT USED FOR UNKNOWN INDICATION
     Dates: start: 202002
  3. ARIKAYCE [Suspect]
     Active Substance: AMIKACIN
     Indication: MYCOBACTERIAL INFECTION
     Dosage: USING ARIKAYCE ON MONDAY, WEDNESDAY AND FRIDAY
     Route: 055
     Dates: start: 20181204

REACTIONS (2)
  - Haemoptysis [Unknown]
  - Off label use [Unknown]
